FAERS Safety Report 15093548 (Version 1)
Quarter: 2018Q2

REPORT INFORMATION
  Report Type: Spontaneous
  Country: US (occurrence: US)
  Receive Date: 20180629
  Receipt Date: 20180629
  Transmission Date: 20180711
  Serious: No
  Sender: FDA-Public Use
  Company Number: US-IPSEN BIOPHARMACEUTICALS, INC.-2018-06865

PATIENT
  Age: 25 Year
  Sex: Female

DRUGS (5)
  1. DYSPORT [Suspect]
     Active Substance: ABOBOTULINUMTOXINA
     Indication: SKIN COSMETIC PROCEDURE
     Dosage: NO REPORTED
     Route: 065
  2. RESTYLANE REFYNE [Concomitant]
     Active Substance: HYALURONIC ACID\LIDOCAINE
  3. JUVEDERM [Concomitant]
     Active Substance: HYALURONIC ACID
  4. SCULPTRA AESTHETIC [Suspect]
     Active Substance: POLYLACTIDE, L-
     Indication: SKIN COSMETIC PROCEDURE
     Dosage: 3-3.5 VIALS INJECTED INTO EACH TEMPLE, APPROXIMATELY 6-7 ML TOTAL INJECTED
     Dates: start: 201710
  5. BOTOX [Concomitant]
     Active Substance: ONABOTULINUMTOXINA

REACTIONS (1)
  - Skin disorder [Not Recovered/Not Resolved]

NARRATIVE: CASE EVENT DATE: 201803
